FAERS Safety Report 7504879-6 (Version None)
Quarter: 2011Q2

REPORT INFORMATION
  Report Type: 
  Country: None (occurrence: None)
  Receive Date: 20110526
  Receipt Date: 20110518
  Transmission Date: 20111010
  Serious: Yes (Hospitalization)
  Sender: FDA-Public Use
  Company Number: US-BIOGENIDEC-2011BI001516

PATIENT
  Age: 51 Year
  Sex: Female

DRUGS (1)
  1. TYSABRI [Suspect]
     Indication: MULTIPLE SCLEROSIS
     Route: 042
     Dates: start: 20100903, end: 20110318

REACTIONS (7)
  - LIGAMENT RUPTURE [None]
  - UPPER RESPIRATORY TRACT INFECTION [None]
  - DECREASED IMMUNE RESPONSIVENESS [None]
  - PAIN [None]
  - DYSPNOEA [None]
  - ADVERSE DRUG REACTION [None]
  - ROTATOR CUFF SYNDROME [None]
